FAERS Safety Report 5410703-8 (Version None)
Quarter: 2007Q3

REPORT INFORMATION
  Report Type: 
  Country: None (occurrence: None)
  Receive Date: 20070810
  Receipt Date: 20061219
  Transmission Date: 20080115
  Serious: No
  Sender: FDA-Public Use
  Company Number: A0632125A

PATIENT
  Sex: Female

DRUGS (3)
  1. PAXIL CR [Suspect]
     Dosage: 25MG PER DAY
     Route: 048
  2. SONATA [Concomitant]
  3. SEROQUEL [Concomitant]

REACTIONS (6)
  - ANOREXIA [None]
  - CHEST DISCOMFORT [None]
  - COMPULSIONS [None]
  - DRY MOUTH [None]
  - INSOMNIA [None]
  - TREMOR [None]
